FAERS Safety Report 19296165 (Version 1)
Quarter: 2021Q2

REPORT INFORMATION
  Report Type: Spontaneous
  Country: US (occurrence: US)
  Receive Date: 20210524
  Receipt Date: 20210524
  Transmission Date: 20210717
  Serious: Yes (Other)
  Sender: FDA-Public Use
  Company Number: US-NALPROPION PHARMACEUTICALS INC.-2021-013071

PATIENT
  Age: 64 Year
  Sex: Male

DRUGS (2)
  1. CONTRAVE [Suspect]
     Active Substance: BUPROPION HYDROCHLORIDE\NALTREXONE HYDROCHLORIDE
     Dosage: 4 TAB, BID (WENT UP TO THE FULL DOSAGE)
     Route: 048
     Dates: start: 20210513, end: 20210518
  2. CONTRAVE [Suspect]
     Active Substance: BUPROPION HYDROCHLORIDE\NALTREXONE HYDROCHLORIDE
     Indication: WEIGHT CONTROL
     Dosage: STRENGTH: 8/90 MG, UNKNOWN DOSE AND FREQUENCY
     Route: 048
     Dates: start: 20210422

REACTIONS (3)
  - Lip swelling [Not Recovered/Not Resolved]
  - Urticaria [Not Recovered/Not Resolved]
  - Pruritus [Not Recovered/Not Resolved]

NARRATIVE: CASE EVENT DATE: 20210518
